FAERS Safety Report 17045451 (Version 1)
Quarter: 2019Q4

REPORT INFORMATION
  Report Type: Report from Study
  Country: US (occurrence: US)
  Receive Date: 20191118
  Receipt Date: 20191118
  Transmission Date: 20200122
  Serious: No
  Sender: FDA-Public Use
  Company Number: NVSC2019US038424

PATIENT
  Sex: Female

DRUGS (2)
  1. ENTRESTO [Suspect]
     Active Substance: SACUBITRIL\VALSARTAN
     Indication: CARDIAC FAILURE
     Dosage: 97 MG, BID
     Route: 065
  2. ENTRESTO [Suspect]
     Active Substance: SACUBITRIL\VALSARTAN
     Dosage: 49/51
     Route: 065

REACTIONS (2)
  - Hypotension [Unknown]
  - Fatigue [Unknown]
